FAERS Safety Report 21568706 (Version 1)
Quarter: 2022Q4

REPORT INFORMATION
  Report Type: Spontaneous
  Country: US (occurrence: None)
  Receive Date: 20221107
  Receipt Date: 20221107
  Transmission Date: 20230113
  Serious: Yes (Hospitalization)
  Sender: FDA-Public Use
  Company Number: None

PATIENT
  Age: 71 Year
  Sex: Female

DRUGS (1)
  1. VENLAFAXINE HYDROCHLORIDE [Suspect]
     Active Substance: VENLAFAXINE HYDROCHLORIDE
     Indication: Depression
     Dosage: FREQUENCY : DAILY;?
     Route: 048
     Dates: start: 20221001, end: 20221027

REACTIONS (5)
  - Toxicity to various agents [None]
  - Pulmonary toxicity [None]
  - Hypoxia [None]
  - Lung opacity [None]
  - Respiratory failure [None]

NARRATIVE: CASE EVENT DATE: 20221025
